FAERS Safety Report 11463979 (Version 1)
Quarter: 2015Q3

REPORT INFORMATION
  Report Type: Spontaneous
  Country: US (occurrence: US)
  Receive Date: 20150831
  Receipt Date: 20150831
  Transmission Date: 20151125
  Serious: No
  Sender: FDA-Public Use
  Company Number: US-ELI_LILLY_AND_COMPANY-US201103007559

PATIENT
  Age: 55 Year
  Sex: Female

DRUGS (9)
  1. XANAX [Concomitant]
     Active Substance: ALPRAZOLAM
     Indication: ANXIETY
     Dosage: UNK, BID
  2. CYMBALTA [Suspect]
     Active Substance: DULOXETINE HYDROCHLORIDE
     Dosage: 30 MG, QD
  3. XANAX [Concomitant]
     Active Substance: ALPRAZOLAM
     Dosage: UNK, UNKNOWN
  4. NEXIUM [Concomitant]
     Active Substance: ESOMEPRAZOLE MAGNESIUM
     Indication: ABDOMINAL DISCOMFORT
     Dosage: UNK, PRN
  5. ESTRACE [Concomitant]
     Active Substance: ESTRADIOL
     Dosage: 1 MG, UNKNOWN
  6. LORCET [Concomitant]
     Active Substance: ACETAMINOPHEN\HYDROCODONE BITARTRATE
  7. CYMBALTA [Suspect]
     Active Substance: DULOXETINE HYDROCHLORIDE
     Indication: DEPRESSION
     Dosage: 30 MG, QD
     Dates: start: 20110322
  8. CYMBALTA [Suspect]
     Active Substance: DULOXETINE HYDROCHLORIDE
     Dosage: 30 MG, QD
  9. LOTENSIN [Concomitant]
     Active Substance: BENAZEPRIL HYDROCHLORIDE
     Indication: HYPERTENSION
     Dosage: 20 MG, UNKNOWN

REACTIONS (7)
  - Hiccups [Unknown]
  - Decreased appetite [Unknown]
  - Weight decreased [Unknown]
  - Crying [Unknown]
  - Pain [Unknown]
  - Depressed mood [Unknown]
  - Nausea [Unknown]

NARRATIVE: CASE EVENT DATE: 20110323
